FAERS Safety Report 8264988-3 (Version None)
Quarter: 2012Q2

REPORT INFORMATION
  Report Type: 
  Country: None (occurrence: None)
  Receive Date: 20120406
  Receipt Date: 20120328
  Transmission Date: 20120825
  Serious: No
  Sender: FDA-Public Use
  Company Number: AU-JNJFOC-20120314773

PATIENT
  Sex: Male

DRUGS (1)
  1. DURAGESIC-100 [Suspect]
     Indication: PAIN
     Dosage: FROM THE PAST 2 MONTHS
     Route: 062

REACTIONS (3)
  - DRUG INEFFECTIVE [None]
  - WRONG TECHNIQUE IN DRUG USAGE PROCESS [None]
  - PRODUCT QUALITY ISSUE [None]
